FAERS Safety Report 13870130 (Version 1)
Quarter: 2017Q3

REPORT INFORMATION
  Report Type: Report from Study
  Country: US (occurrence: US)
  Receive Date: 20170815
  Receipt Date: 20170815
  Transmission Date: 20171127
  Serious: No
  Sender: FDA-Public Use
  Company Number: US-TARO-2017TAR00028

PATIENT
  Sex: Male
  Weight: 99.77 kg

DRUGS (1)
  1. DESONIDE CREAM USP 0.05% [Suspect]
     Active Substance: DESONIDE
     Indication: RASH PRURITIC
     Dosage: UNK, 2X/DAY, FOR TWO WEEKS
     Route: 061
     Dates: start: 1999, end: 1999

REACTIONS (7)
  - Swelling face [Not Recovered/Not Resolved]
  - Pruritus [Not Recovered/Not Resolved]
  - Seborrhoea [Not Recovered/Not Resolved]
  - Skin hypopigmentation [Not Recovered/Not Resolved]
  - Rash pustular [Not Recovered/Not Resolved]
  - Exposure via blood [Recovered/Resolved]
  - Cough [Not Recovered/Not Resolved]

NARRATIVE: CASE EVENT DATE: 1999
